FAERS Safety Report 26023420 (Version 1)
Quarter: 2025Q4

REPORT INFORMATION
  Report Type: Report from Study
  Country: CN (occurrence: CN)
  Receive Date: 20251110
  Receipt Date: 20251110
  Transmission Date: 20260118
  Serious: Yes (Other)
  Sender: ROCHE
  Company Number: CN-ROCHE-10000155280

PATIENT
  Age: 65 Year
  Sex: Male
  Weight: 74 kg

DRUGS (24)
  1. RITUXIMAB [Suspect]
     Active Substance: RITUXIMAB
     Indication: Diffuse large B-cell lymphoma
     Route: 042
     Dates: start: 20241027, end: 20241027
  2. RITUXIMAB [Suspect]
     Active Substance: RITUXIMAB
     Route: 042
     Dates: start: 20241120, end: 20241120
  3. POLATUZUMAB VEDOTIN [Suspect]
     Active Substance: POLATUZUMAB VEDOTIN
     Indication: Diffuse large B-cell lymphoma
     Route: 042
     Dates: start: 20241026, end: 20241026
  4. POLATUZUMAB VEDOTIN [Suspect]
     Active Substance: POLATUZUMAB VEDOTIN
     Route: 042
     Dates: start: 20241120, end: 20241120
  5. CYCLOPHOSPHAMIDE [Suspect]
     Active Substance: CYCLOPHOSPHAMIDE
     Indication: Diffuse large B-cell lymphoma
     Route: 065
  6. BENDAMUSTINE [Suspect]
     Active Substance: BENDAMUSTINE
     Indication: Diffuse large B-cell lymphoma
     Route: 042
     Dates: start: 20241028, end: 20241029
  7. BENDAMUSTINE [Suspect]
     Active Substance: BENDAMUSTINE
     Route: 042
     Dates: start: 20241122, end: 20241123
  8. DOXORUBICIN HYDROCHLORIDE [Suspect]
     Active Substance: DOXORUBICIN HYDROCHLORIDE
     Indication: Diffuse large B-cell lymphoma
     Route: 065
  9. AMMONIUM GLYCYRRHIZATE [Concomitant]
     Active Substance: AMMONIUM GLYCYRRHIZATE
     Route: 048
     Dates: start: 20241019, end: 20241028
  10. Injectable Multivitamins [Concomitant]
     Route: 042
     Dates: start: 20241020, end: 20241027
  11. Compound Electrolyte Sodium Acetate Glucose Injection [Concomitant]
     Route: 042
     Dates: start: 20241020, end: 20241025
  12. Injectable Rosaniline Acetate Hydrochloride [Concomitant]
     Route: 042
     Dates: start: 20241020, end: 20241026
  13. The Six Harmonies Amino Acids [Concomitant]
     Route: 042
     Dates: start: 20241022, end: 20241027
  14. ENTECAVIR [Concomitant]
     Active Substance: ENTECAVIR
     Indication: Prophylaxis
     Route: 048
     Dates: start: 20241026, end: 20241028
  15. CALCIUM CARBONATE\CHOLECALCIFEROL [Concomitant]
     Active Substance: CALCIUM CARBONATE\CHOLECALCIFEROL
     Dosage: DOSE: 1 TAB
     Route: 048
     Dates: start: 20241026, end: 20241028
  16. Injection of Moxifloxacin [Concomitant]
     Route: 042
     Dates: start: 20241027, end: 20241028
  17. DEXAMETHASONE SODIUM PHOSPHATE [Concomitant]
     Active Substance: DEXAMETHASONE SODIUM PHOSPHATE
     Route: 042
     Dates: start: 20241020, end: 20241020
  18. Tramadol Injection [Concomitant]
     Indication: Analgesic therapy
     Route: 042
     Dates: start: 20241021, end: 20241021
  19. FENTANYL TRANSDERMAL SYSTEM [Concomitant]
     Active Substance: FENTANYL
     Indication: Analgesic therapy
     Route: 050
     Dates: start: 20241022, end: 20241022
  20. ACETAMINOPHEN [Concomitant]
     Active Substance: ACETAMINOPHEN
     Route: 048
     Dates: start: 20241025, end: 20241025
  21. Sodium Methyldopa Injection [Concomitant]
     Route: 042
     Dates: start: 20241026, end: 20241026
  22. Dolasetron Mesylate Injection [Concomitant]
     Route: 042
     Dates: start: 20241026, end: 20241026
  23. SODIUM BICARBONATE [Concomitant]
     Active Substance: SODIUM BICARBONATE
     Route: 042
     Dates: start: 20241026, end: 20241026
  24. Sulbactam and Cefoperazone Injection [Concomitant]
     Route: 058
     Dates: start: 20241027, end: 20241027

REACTIONS (3)
  - Arrhythmia [Not Recovered/Not Resolved]
  - Blood uric acid increased [Recovered/Resolved]
  - Supraventricular extrasystoles [Not Recovered/Not Resolved]

NARRATIVE: CASE EVENT DATE: 20241118
